FAERS Safety Report 8231170-5 (Version None)
Quarter: 2012Q1

REPORT INFORMATION
  Report Type: 
  Country: None (occurrence: None)
  Receive Date: 20120323
  Receipt Date: 20120323
  Transmission Date: 20120608
  Serious: Yes (Hospitalization)
  Sender: FDA-Public Use
  Company Number: None

PATIENT
  Age: 25 Year
  Sex: Male
  Weight: 81.646 kg

DRUGS (1)
  1. MEFLOQUINE HYDROCHLORIDE [Suspect]
     Indication: MALARIA PROPHYLAXIS

REACTIONS (13)
  - HEADACHE [None]
  - ASTHENIA [None]
  - ANXIETY [None]
  - NAUSEA [None]
  - FATIGUE [None]
  - DEPRESSED LEVEL OF CONSCIOUSNESS [None]
  - VISUAL IMPAIRMENT [None]
  - FEAR [None]
  - VOMITING [None]
  - ABASIA [None]
  - GRAND MAL CONVULSION [None]
  - AMNESIA [None]
  - VISION BLURRED [None]
